FAERS Safety Report 8377172-X (Version None)
Quarter: 2012Q2

REPORT INFORMATION
  Report Type: 
  Country: None (occurrence: None)
  Receive Date: 20120522
  Receipt Date: 20120503
  Transmission Date: 20120825
  Serious: Yes (Hospitalization)
  Sender: FDA-Public Use
  Company Number: FR-ROCHE-1043504

PATIENT
  Sex: Female

DRUGS (16)
  1. MABTHERA [Suspect]
     Dosage: INDUCTION TREATMENT
     Dates: start: 20071011
  2. MABTHERA [Suspect]
     Dosage: MAINTENANCE TREATMENT
     Dates: start: 20090611
  3. MABTHERA [Suspect]
     Dosage: MAINTENANCE TREATMENT
     Dates: start: 20090903, end: 20091126
  4. ALPRAZOLAM [Concomitant]
     Indication: ANXIETY
     Route: 048
  5. MABTHERA [Suspect]
     Indication: B-CELL LYMPHOMA
     Dosage: INDUCTION TREATMENT
     Dates: start: 20070920
  6. MABTHERA [Suspect]
     Dosage: MAINTENANCE TREATMENT
     Dates: start: 20081218
  7. FUROSEMIDE [Concomitant]
     Indication: RENAL FAILURE
     Dosage: 1/4 PER DAY
     Route: 048
     Dates: start: 20120401
  8. MABTHERA [Suspect]
     Dosage: MAINTENANCE TREATMENT
     Dates: start: 20080925
  9. LEVOTHYROXINE SODIUM [Concomitant]
     Indication: HYPOTHYROIDISM
     Route: 048
  10. PROPRANOLOL [Concomitant]
     Indication: HYPERTENSION
     Route: 048
  11. MABTHERA [Suspect]
     Dates: start: 20071120
  12. MABTHERA [Suspect]
     Dosage: MAINTENANCE TREATMENT
     Dates: start: 20080110
  13. MABTHERA [Suspect]
     Dosage: INDUCTION TREATMENT
     Dates: start: 20070927
  14. MABTHERA [Suspect]
     Dosage: INDUCTION TREATMENT
     Dates: start: 20071004
  15. MABTHERA [Suspect]
     Dosage: MAINTENANCE TREATMENT
     Dates: start: 20080410
  16. MABTHERA [Suspect]
     Dosage: MAINTENANCE TREATMENT
     Dates: start: 20090312

REACTIONS (1)
  - LUNG ADENOCARCINOMA [None]
